FAERS Safety Report 4340705-4 (Version None)
Quarter: 2004Q2

REPORT INFORMATION
  Report Type: 
  Country: None (occurrence: None)
  Receive Date: 20040413
  Receipt Date: 20040405
  Transmission Date: 20050107
  Serious: No
  Sender: FDA-Public Use
  Company Number: US-SHR-03-017205

PATIENT
  Age: 31 Year
  Sex: Male
  Weight: 88.4 kg

DRUGS (1)
  1. BETASERON [Suspect]
     Indication: MULTIPLE SCLEROSIS
     Dosage: 8 MIU, EVERY 2D, SUBCUTANEOUS
     Route: 058
     Dates: start: 20020701

REACTIONS (3)
  - OCCUPATIONAL PHYSICAL PROBLEM [None]
  - ROTATOR CUFF SYNDROME [None]
  - STRESS SYMPTOMS [None]
